FAERS Safety Report 9798131 (Version 1)
Quarter: 2014Q1

REPORT INFORMATION
  Report Type: Spontaneous
  Country: US (occurrence: None)
  Receive Date: 20140102
  Receipt Date: 20140102
  Transmission Date: 20141002
  Serious: Yes (Other)
  Sender: FDA-Public Use
  Company Number: None

PATIENT
  Sex: Female
  Weight: 66 kg

DRUGS (2)
  1. CARBOPLATIN [Suspect]
     Dates: end: 20130617
  2. TOPOTECAN [Suspect]
     Dates: end: 20130617

REACTIONS (3)
  - Febrile neutropenia [None]
  - Klebsiella bacteraemia [None]
  - Clostridium difficile colitis [None]
